FAERS Safety Report 23912291 (Version 1)
Quarter: 2024Q2

REPORT INFORMATION
  Report Type: Report from Study
  Country: CO (occurrence: None)
  Receive Date: 20240528
  Receipt Date: 20240528
  Transmission Date: 20240716
  Serious: Yes (Other)
  Sender: FDA-Public Use
  Company Number: 2024A121230

PATIENT
  Age: 25855 Day
  Sex: Female
  Weight: 54 kg

DRUGS (1)
  1. TAGRISSO [Suspect]
     Active Substance: OSIMERTINIB
     Indication: Lung neoplasm malignant
     Route: 048
     Dates: start: 20240105

REACTIONS (6)
  - Blister [Recovering/Resolving]
  - Feeling hot [Recovering/Resolving]
  - Burning sensation [Recovering/Resolving]
  - Injury [Recovering/Resolving]
  - Pustule [Recovering/Resolving]
  - Rash [Recovering/Resolving]

NARRATIVE: CASE EVENT DATE: 20240105
